FAERS Safety Report 15594258 (Version 1)
Quarter: 2018Q4

REPORT INFORMATION
  Report Type: Report from Study
  Country: JP (occurrence: JP)
  Receive Date: 20181106
  Receipt Date: 20181106
  Transmission Date: 20190205
  Serious: Yes (Death)
  Sender: FDA-Public Use
  Company Number: JP-MYLANLABS-2018M1083864

PATIENT
  Age: 75 Year
  Sex: Female

DRUGS (4)
  1. FLUOROURACIL. [Suspect]
     Active Substance: FLUOROURACIL
     Dosage: CONTINUOUS 46-HOURS INFUSION; REPEATED EVERY 2 WEEKS
     Route: 050
  2. OXALIPLATIN. [Suspect]
     Active Substance: OXALIPLATIN
     Indication: ADENOCARCINOMA GASTRIC
     Dosage: ADMINISTERED OVER 2 HOURS, REPEATED EVERY 2 WEEKS
     Route: 050
  3. FLUOROURACIL. [Suspect]
     Active Substance: FLUOROURACIL
     Indication: ADENOCARCINOMA GASTRIC
     Dosage: REPEATED EVERY 2 WEEKS
     Route: 050
  4. CALCIUM FOLINATE [Suspect]
     Active Substance: LEUCOVORIN CALCIUM
     Indication: ADENOCARCINOMA GASTRIC
     Dosage: ADMINISTERED OVER 2 HOURS; REPEATED EVERY 2 WEEKS
     Route: 050

REACTIONS (2)
  - Bacterial translocation [Fatal]
  - Septic shock [Fatal]
